FAERS Safety Report 9765279 (Version 1)
Quarter: 2013Q4

REPORT INFORMATION
  Report Type: Spontaneous
  Country: US (occurrence: US)
  Receive Date: 20131217
  Receipt Date: 20131217
  Transmission Date: 20140711
  Serious: No
  Sender: FDA-Public Use
  Company Number: US-GLAXOSMITHKLINE-A1005087A

PATIENT
  Age: 75 Year
  Sex: Female

DRUGS (1)
  1. VOTRIENT [Suspect]
     Indication: METASTASES TO LUNG
     Dosage: 2TAB PER DAY
     Route: 048
     Dates: start: 20121226

REACTIONS (2)
  - Blood pressure increased [Unknown]
  - Skin ulcer [Not Recovered/Not Resolved]
